FAERS Safety Report 4894204-1 (Version None)
Quarter: 2006Q1

REPORT INFORMATION
  Report Type: 
  Country: None (occurrence: None)
  Receive Date: 20060127
  Receipt Date: 20051013
  Transmission Date: 20060701
  Serious: No
  Sender: FDA-Public Use
  Company Number: US-GLAXOSMITHKLINE-A0578163A

PATIENT
  Age: 59 Year
  Sex: Female

DRUGS (2)
  1. WELLBUTRIN [Suspect]
     Indication: FIBROMYALGIA
     Dosage: 200MG PER DAY
     Route: 048
     Dates: start: 20050301
  2. LEVOXYL [Concomitant]

REACTIONS (2)
  - ALOPECIA [None]
  - NAIL DISORDER [None]
